FAERS Safety Report 19643050 (Version 4)
Quarter: 2022Q1

REPORT INFORMATION
  Report Type: Report from Study
  Country: IL (occurrence: IL)
  Receive Date: 20210730
  Receipt Date: 20220110
  Transmission Date: 20220424
  Serious: Yes (Hospitalization)
  Sender: FDA-Public Use
  Company Number: IL-JNJFOC-20210701821

PATIENT
  Age: 59 Year
  Sex: Female
  Weight: 82 kg

DRUGS (17)
  1. AMIVANTAMAB [Suspect]
     Active Substance: AMIVANTAMAB
     Indication: Non-small cell lung cancer
     Dosage: MOST RECENT DOSE ON 08-JUL-2021
     Route: 042
     Dates: start: 20210615, end: 20210622
  2. AMIVANTAMAB [Suspect]
     Active Substance: AMIVANTAMAB
     Dosage: MOST RECENT DOSE: 08-JUL-2021
     Route: 042
     Dates: start: 20210615, end: 20210708
  3. CARBOPLATIN [Suspect]
     Active Substance: CARBOPLATIN
     Indication: Non-small cell lung cancer
     Dosage: ALSO REPORTED AS 737 MG; MOST RECENT DOSE 08-JUL-2021
     Route: 042
     Dates: start: 20210614, end: 20210614
  4. CARBOPLATIN [Suspect]
     Active Substance: CARBOPLATIN
     Dosage: ALSO REPORTED AS 737 MG; MOST RECENT DOSE 08-JUL-2021
     Route: 042
     Dates: start: 20210614, end: 20210708
  5. PEMETREXED [Suspect]
     Active Substance: PEMETREXED
     Indication: Non-small cell lung cancer
     Route: 042
     Dates: start: 20210614, end: 20210708
  6. LIPITOR [Concomitant]
     Active Substance: ATORVASTATIN CALCIUM
     Indication: Hyperlipidaemia
     Route: 048
     Dates: start: 20150120
  7. LIPITOR [Concomitant]
     Active Substance: ATORVASTATIN CALCIUM
     Indication: Hypercholesterolaemia
  8. FOLIC ACID [Concomitant]
     Active Substance: FOLIC ACID
     Indication: Prophylaxis
     Route: 048
     Dates: start: 20210630, end: 20210708
  9. FOLIC ACID [Concomitant]
     Active Substance: FOLIC ACID
     Route: 048
     Dates: start: 20210717, end: 20210723
  10. SOLVEX [BROMHEXINE HYDROCHLORIDE] [Concomitant]
     Indication: Non-small cell lung cancer
     Route: 048
     Dates: start: 20210702, end: 20210708
  11. LOSEC [Concomitant]
     Active Substance: OMEPRAZOLE
     Indication: Prophylaxis against gastrointestinal ulcer
     Route: 048
     Dates: start: 20210704, end: 20210707
  12. LOSEC [Concomitant]
     Active Substance: OMEPRAZOLE
     Indication: Prophylaxis
     Route: 048
     Dates: start: 20210718, end: 20210723
  13. PROCTO GLYVENOL [LIDOCAINE;TRIBENOSIDE] [Concomitant]
     Indication: Haemorrhoids
     Route: 061
     Dates: start: 20210709, end: 20210808
  14. CARBOSYLANE [CHARCOAL, ACTIVATED;SIMETICONE] [Concomitant]
     Indication: Constipation
     Route: 048
     Dates: start: 20210713, end: 20210713
  15. METAMIZOLE [Concomitant]
     Active Substance: METAMIZOLE
     Indication: Constipation
     Route: 048
     Dates: start: 20210713, end: 20210713
  16. LACTULOSE [Concomitant]
     Active Substance: LACTULOSE
     Indication: Constipation
     Route: 048
     Dates: start: 20210715, end: 20210715
  17. PENCICLOVIR [Concomitant]
     Active Substance: PENCICLOVIR
     Indication: Herpes virus infection
     Route: 061

REACTIONS (2)
  - Skin infection [Recovering/Resolving]
  - Rash pustular [Recovering/Resolving]

NARRATIVE: CASE EVENT DATE: 20210629
